FAERS Safety Report 19817255 (Version 1)
Quarter: 2021Q3

REPORT INFORMATION
  Report Type: Spontaneous
  Country: US (occurrence: US)
  Receive Date: 20210910
  Receipt Date: 20210910
  Transmission Date: 20211014
  Serious: No
  Sender: FDA-Public Use
  Company Number: US-MYLANLABS-2021M1056197

PATIENT
  Sex: Female

DRUGS (1)
  1. ESTRADIOL TRANSDERMAL SYSTEM [Suspect]
     Active Substance: ESTRADIOL
     Indication: BLOOD OESTROGEN DECREASED
     Dosage: 0.025 MILLIGRAM, Q2W (TWICE?WEEKLY PATCH)
     Route: 062

REACTIONS (2)
  - Menstrual disorder [Recovered/Resolved]
  - Off label use [Not Recovered/Not Resolved]
